FAERS Safety Report 8123986-0 (Version None)
Quarter: 2012Q1

REPORT INFORMATION
  Report Type: 
  Country: None (occurrence: None)
  Receive Date: 20120209
  Receipt Date: 20120126
  Transmission Date: 20120608
  Serious: Yes (Hospitalization, Other)
  Sender: FDA-Public Use
  Company Number: JP-RANBAXY-2011R1-50198

PATIENT
  Age: 26 Year
  Sex: Female

DRUGS (2)
  1. AMOXAPINE [Suspect]
     Indication: PRODUCT USED FOR UNKNOWN INDICATION
     Dosage: UNK
     Route: 065
  2. NORTRIPTYLINE HYDROCHLORIDE [Suspect]
     Indication: PRODUCT USED FOR UNKNOWN INDICATION
     Dosage: UNK
     Route: 065

REACTIONS (5)
  - TOXICITY TO VARIOUS AGENTS [None]
  - CARDIOVASCULAR INSUFFICIENCY [None]
  - DYSPNOEA [None]
  - METABOLIC ACIDOSIS [None]
  - INTENTIONAL OVERDOSE [None]
